FAERS Safety Report 9788835 (Version 3)
Quarter: 2015Q4

REPORT INFORMATION
  Report Type: Report from Study
  Country: US (occurrence: US)
  Receive Date: 20131230
  Receipt Date: 20151224
  Transmission Date: 20160305
  Serious: Yes (Hospitalization, Other)
  Sender: FDA-Public Use
  Company Number: US-ASTELLAS-2013US013474

PATIENT
  Age: 54 Year
  Sex: Male

DRUGS (10)
  1. AVASTIN [Suspect]
     Active Substance: BEVACIZUMAB
     Indication: LUNG CANCER METASTATIC
  2. TAXOL [Concomitant]
     Active Substance: PACLITAXEL
     Indication: NON-SMALL CELL LUNG CANCER
     Dosage: UNKNOWN FREQ,6 CYCLES
     Route: 065
     Dates: start: 2008
  3. PEMETREXED [Concomitant]
     Active Substance: PEMETREXED
     Indication: NON-SMALL CELL LUNG CANCER
     Dosage: UNKNOWN FREQ, 6 CYCLES AT 500/5
     Route: 065
     Dates: start: 2008
  4. PEMETREXED [Concomitant]
     Active Substance: PEMETREXED
     Indication: LUNG CANCER METASTATIC
  5. ERLOTINIB [Suspect]
     Active Substance: ERLOTINIB
     Indication: LUNG CANCER METASTATIC
  6. AVASTIN [Suspect]
     Active Substance: BEVACIZUMAB
     Indication: NON-SMALL CELL LUNG CANCER
     Route: 042
     Dates: start: 2008
  7. CARBOPLATIN. [Concomitant]
     Active Substance: CARBOPLATIN
     Indication: NON-SMALL CELL LUNG CANCER
     Dosage: UNKNOWN FREQ, 6 CYCLES AT 500/5
     Route: 065
     Dates: start: 2008
  8. ERLOTINIB [Suspect]
     Active Substance: ERLOTINIB
     Indication: NON-SMALL CELL LUNG CANCER
     Route: 048
     Dates: start: 20090213
  9. CARBOPLATIN. [Concomitant]
     Active Substance: CARBOPLATIN
     Indication: LUNG CANCER METASTATIC
  10. TAXOL [Concomitant]
     Active Substance: PACLITAXEL
     Indication: LUNG CANCER METASTATIC

REACTIONS (8)
  - Malignant neoplasm progression [Not Recovered/Not Resolved]
  - Acne [Unknown]
  - Dyspnoea [Unknown]
  - Pleural effusion [Unknown]
  - Pain [Unknown]
  - White blood cell count abnormal [Unknown]
  - Haemothorax [Unknown]
  - Alopecia [Unknown]

NARRATIVE: CASE EVENT DATE: 20131205
